FAERS Safety Report 25977930 (Version 4)
Quarter: 2025Q4

REPORT INFORMATION
  Report Type: Spontaneous
  Country: BR (occurrence: BR)
  Receive Date: 20251030
  Receipt Date: 20251201
  Transmission Date: 20260118
  Serious: Yes (Life-Threatening, Other)
  Sender: NOVARTIS
  Company Number: BR-002147023-NVSC2025BR165022

PATIENT
  Sex: Female
  Weight: 28 kg

DRUGS (5)
  1. TRILEPTAL [Suspect]
     Active Substance: OXCARBAZEPINE
     Indication: Petit mal epilepsy
     Dosage: 60 MILLIGRAM PER MILLILITRE (SUSPETION CT FR VD AMB X 100 ML PLUS 2 SER DOS) (5 ML IN THE MORNING AN
     Route: 048
  2. CANNABIDIOL [Concomitant]
     Active Substance: CANNABIDIOL
     Indication: Autism spectrum disorder
     Dosage: UNK (30 DROPS IN THE MORNING, 10 AFTER LUNCH AND 30 DROPS AT NIGHT)
     Route: 065
  3. CLOBAZAM [Concomitant]
     Active Substance: CLOBAZAM
     Indication: Autism spectrum disorder
     Dosage: UNK (AT NIGHT)
     Route: 065
  4. SERTRALINE [Concomitant]
     Active Substance: SERTRALINE HYDROCHLORIDE
     Indication: Autism spectrum disorder
     Dosage: UNK (IN THE MORNING)
     Route: 065
  5. LAMOTRIGINE [Concomitant]
     Active Substance: LAMOTRIGINE
     Indication: Autism spectrum disorder
     Dosage: UNK
     Route: 065

REACTIONS (7)
  - Brain hypoxia [Recovered/Resolved]
  - Seizure [Recovered/Resolved]
  - Autism spectrum disorder [Not Recovered/Not Resolved]
  - Product container seal issue [Unknown]
  - Cognitive disorder [Recovering/Resolving]
  - Affect lability [Recovering/Resolving]
  - Chills [Recovered/Resolved]

NARRATIVE: CASE EVENT DATE: 20250101
